FAERS Safety Report 16747023 (Version 2)
Quarter: 2019Q4

REPORT INFORMATION
  Report Type: Spontaneous
  Country: US (occurrence: US)
  Receive Date: 20190827
  Receipt Date: 20191122
  Transmission Date: 20200122
  Serious: Yes (Other)
  Sender: FDA-Public Use
  Company Number: US-ASTRAZENECA-2018SF26104

PATIENT
  Age: 18449 Day
  Sex: Female
  Weight: 69.9 kg

DRUGS (48)
  1. OMEPRAZOLE. [Suspect]
     Active Substance: OMEPRAZOLE
     Indication: GASTROOESOPHAGEAL REFLUX DISEASE
     Route: 065
     Dates: start: 201809
  2. TIZANIDINE. [Concomitant]
     Active Substance: TIZANIDINE
  3. KETOROLAC [Concomitant]
     Active Substance: KETOROLAC TROMETHAMINE
  4. NITROFURANTOIN. [Concomitant]
     Active Substance: NITROFURANTOIN
  5. OMEPRAZOLE. [Suspect]
     Active Substance: OMEPRAZOLE
     Indication: GASTROOESOPHAGEAL REFLUX DISEASE
     Route: 065
     Dates: start: 20131002, end: 201404
  6. XANAX [Concomitant]
     Active Substance: ALPRAZOLAM
  7. METFORMIN [Concomitant]
     Active Substance: METFORMIN HYDROCHLORIDE
     Indication: DIABETES MELLITUS
  8. PROPANOLOL [Concomitant]
     Active Substance: PROPRANOLOL HYDROCHLORIDE
     Indication: HYPERTENSION
  9. SERTRALINE [Concomitant]
     Active Substance: SERTRALINE HYDROCHLORIDE
     Indication: DEPRESSION
  10. DIAZEPAM. [Concomitant]
     Active Substance: DIAZEPAM
  11. ADVAIR HFA [Concomitant]
     Active Substance: FLUTICASONE PROPIONATE\SALMETEROL XINAFOATE
  12. MELOXICAM. [Concomitant]
     Active Substance: MELOXICAM
  13. CHANTIX [Concomitant]
     Active Substance: VARENICLINE TARTRATE
  14. PRILOSEC OTC [Suspect]
     Active Substance: OMEPRAZOLE MAGNESIUM
     Indication: GASTROOESOPHAGEAL REFLUX DISEASE
     Route: 048
     Dates: start: 20171106
  15. LOSARTAN. [Concomitant]
     Active Substance: LOSARTAN
  16. VITAMIN D [Concomitant]
     Active Substance: VITAMIN D NOS
     Indication: VITAMIN D DEFICIENCY
  17. TEMAZEPAM. [Concomitant]
     Active Substance: TEMAZEPAM
  18. PRILOSEC OTC [Suspect]
     Active Substance: OMEPRAZOLE MAGNESIUM
     Indication: GASTROOESOPHAGEAL REFLUX DISEASE
     Route: 048
     Dates: start: 2007, end: 2018
  19. OMEPRAZOLE. [Suspect]
     Active Substance: OMEPRAZOLE
     Indication: GASTROOESOPHAGEAL REFLUX DISEASE
     Route: 065
     Dates: start: 20140902, end: 201502
  20. PREVACID [Suspect]
     Active Substance: LANSOPRAZOLE
     Indication: GASTROOESOPHAGEAL REFLUX DISEASE
     Route: 065
     Dates: start: 2007, end: 2018
  21. PREVACID [Suspect]
     Active Substance: LANSOPRAZOLE
     Indication: GASTROOESOPHAGEAL REFLUX DISEASE
     Route: 065
     Dates: start: 20070223, end: 200708
  22. AMITRIPTYLINE [Concomitant]
     Active Substance: AMITRIPTYLINE
     Indication: DEPRESSION
  23. LEVOTHYROXINE. [Concomitant]
     Active Substance: LEVOTHYROXINE
     Indication: HYPOTHYROIDISM
  24. TIZANIDINE. [Concomitant]
     Active Substance: TIZANIDINE
  25. PRILOSEC OTC [Suspect]
     Active Substance: OMEPRAZOLE MAGNESIUM
     Indication: GASTROOESOPHAGEAL REFLUX DISEASE
     Route: 048
     Dates: start: 2007, end: 2008
  26. OMEPRAZOLE. [Suspect]
     Active Substance: OMEPRAZOLE
     Indication: GASTROOESOPHAGEAL REFLUX DISEASE
     Route: 048
  27. ERYTHROMYCIN. [Concomitant]
     Active Substance: ERYTHROMYCIN
  28. ZANTAC [Concomitant]
     Active Substance: RANITIDINE HYDROCHLORIDE
  29. OXYBUTYNIN. [Concomitant]
     Active Substance: OXYBUTYNIN CHLORIDE
  30. NAPROXEN. [Concomitant]
     Active Substance: NAPROXEN
  31. VISICOL [Concomitant]
     Active Substance: SODIUM PHOSPHATE, DIBASIC, ANHYDROUS\SODIUM PHOSPHATE, MONOBASIC, MONOHYDRATE
  32. OMEPRAZOLE. [Suspect]
     Active Substance: OMEPRAZOLE
     Indication: GASTROOESOPHAGEAL REFLUX DISEASE
     Route: 065
     Dates: start: 20130629, end: 201309
  33. OMEPRAZOLE. [Suspect]
     Active Substance: OMEPRAZOLE
     Indication: GASTROOESOPHAGEAL REFLUX DISEASE
     Route: 065
     Dates: start: 20150206, end: 201809
  34. METFORMINE [Concomitant]
     Active Substance: METFORMIN HYDROCHLORIDE
  35. TRAMADOL. [Concomitant]
     Active Substance: TRAMADOL
  36. DETROL [Concomitant]
     Active Substance: TOLTERODINE TARTRATE
  37. ASACOL [Concomitant]
     Active Substance: MESALAMINE
  38. PRILOSEC OTC [Suspect]
     Active Substance: OMEPRAZOLE MAGNESIUM
     Indication: GASTROOESOPHAGEAL REFLUX DISEASE
     Route: 048
     Dates: start: 20151231, end: 20181113
  39. AMOXICILLIN. [Concomitant]
     Active Substance: AMOXICILLIN
  40. LOSARTAN. [Concomitant]
     Active Substance: LOSARTAN
     Indication: HYPERTENSION
  41. GEMFIBROZIL. [Concomitant]
     Active Substance: GEMFIBROZIL
     Indication: BLOOD CHOLESTEROL
  42. LEVOTHYROXINE. [Concomitant]
     Active Substance: LEVOTHYROXINE
  43. INDERAL [Concomitant]
     Active Substance: PROPRANOLOL HYDROCHLORIDE
  44. FLEXERIL [Concomitant]
     Active Substance: CYCLOBENZAPRINE HYDROCHLORIDE
  45. BENAZEPRIL [Concomitant]
     Active Substance: BENAZEPRIL HYDROCHLORIDE
  46. FLUCONAZOLE. [Concomitant]
     Active Substance: FLUCONAZOLE
  47. PREDNISONE. [Concomitant]
     Active Substance: PREDNISONE
  48. AMANTADINE. [Concomitant]
     Active Substance: AMANTADINE HYDROCHLORIDE

REACTIONS (1)
  - Chronic kidney disease [Not Recovered/Not Resolved]

NARRATIVE: CASE EVENT DATE: 20160302
